FAERS Safety Report 15481527 (Version 1)
Quarter: 2018Q4

REPORT INFORMATION
  Report Type: Spontaneous
  Country: US (occurrence: US)
  Receive Date: 20181010
  Receipt Date: 20181010
  Transmission Date: 20190205
  Serious: Yes (Congenital Anomaly, Other)
  Sender: FDA-Public Use
  Company Number: US-ASTRAZENECA-2018SF31050

PATIENT

DRUGS (2)
  1. PRILOSEC [Suspect]
     Active Substance: OMEPRAZOLE MAGNESIUM
     Indication: GASTROINTESTINAL DISORDER
     Route: 048
  2. PRILOSEC OTC [Suspect]
     Active Substance: OMEPRAZOLE MAGNESIUM
     Indication: GASTROINTESTINAL DISORDER
     Dosage: DOSE UNKNOWN
     Route: 048
     Dates: end: 2017

REACTIONS (7)
  - Chronic kidney disease [Unknown]
  - Drug dependence [Unknown]
  - Rebound effect [Unknown]
  - Hyperchlorhydria [Unknown]
  - End stage renal disease [Unknown]
  - Pain [Unknown]
  - Acute kidney injury [Unknown]
